FAERS Safety Report 4939843-4 (Version None)
Quarter: 2006Q1

REPORT INFORMATION
  Report Type: 
  Country: None (occurrence: None)
  Receive Date: 20060310
  Receipt Date: 20060302
  Transmission Date: 20060701
  Serious: Yes (Other)
  Sender: FDA-Public Use
  Company Number: NL-JNJFOC-20060300755

PATIENT
  Sex: Female

DRUGS (1)
  1. DAKTARIN [Suspect]
     Indication: DRUG USE FOR UNKNOWN INDICATION
     Route: 048

REACTIONS (2)
  - INJURY ASPHYXIATION [None]
  - INTENTIONAL DRUG MISUSE [None]
